FAERS Safety Report 24852760 (Version 1)
Quarter: 2025Q1

REPORT INFORMATION
  Report Type: Other
  Country: BR (occurrence: BR)
  Receive Date: 20250116
  Receipt Date: 20250116
  Transmission Date: 20250408
  Serious: Yes (Hospitalization, Disabling, Other)
  Sender: BRECKENRIDGE PHARMACEUTICAL, INC.
  Company Number: BR-Breckenridge Pharmaceutical, Inc.-2169211

PATIENT
  Age: 27 Year
  Sex: Female

DRUGS (2)
  1. ZOLPIDEM [Suspect]
     Active Substance: ZOLPIDEM TARTRATE
     Indication: Self-medication
  2. CLONAZEPAM [Suspect]
     Active Substance: CLONAZEPAM

REACTIONS (9)
  - Toxicity to various agents [Not Recovered/Not Resolved]
  - Dependence [Not Recovered/Not Resolved]
  - Social problem [Unknown]
  - Disturbance in attention [Unknown]
  - Amnesia [Not Recovered/Not Resolved]
  - Fall [Unknown]
  - Thermal burn [Unknown]
  - Somnolence [Unknown]
  - Drug abuse [Not Recovered/Not Resolved]
